FAERS Safety Report 11696543 (Version 1)
Quarter: 2015Q4

REPORT INFORMATION
  Report Type: Spontaneous
  Country: DE (occurrence: DE)
  Receive Date: 20151104
  Receipt Date: 20151104
  Transmission Date: 20160304
  Serious: Yes (Life-Threatening)
  Sender: FDA-Public Use
  Company Number: DE-WEST-WARD PHARMACEUTICALS CORP.-DE-H14001-15-01896

PATIENT
  Age: 83 Year
  Sex: Female
  Weight: 70 kg

DRUGS (1)
  1. AMIODARON HIKMA [Suspect]
     Active Substance: AMIODARONE
     Indication: ATRIAL FIBRILLATION
     Dosage: 900-1350 MG
     Route: 042
     Dates: start: 20120429, end: 20120504

REACTIONS (6)
  - Platelet count decreased [Unknown]
  - Transaminases increased [Unknown]
  - Alanine aminotransferase increased [None]
  - Blood lactate dehydrogenase increased [Unknown]
  - Aspartate aminotransferase increased [None]
  - Blood cholinesterase decreased [Unknown]

NARRATIVE: CASE EVENT DATE: 201205
